FAERS Safety Report 5197243-9 (Version None)
Quarter: 2006Q4

REPORT INFORMATION
  Report Type: 
  Country: None (occurrence: None)
  Receive Date: 20061228
  Receipt Date: 20061215
  Transmission Date: 20070319
  Serious: Yes (Hospitalization)
  Sender: FDA-Public Use
  Company Number: GXKR2006AU08328

PATIENT
  Age: 27 Year
  Sex: Female

DRUGS (1)
  1. PAROXETINE [Suspect]
     Dosage: ORAL
     Route: 048
     Dates: start: 20030301

REACTIONS (1)
  - TOURETTE'S DISORDER [None]
